FAERS Safety Report 14680411 (Version 2)
Quarter: 2018Q2

REPORT INFORMATION
  Report Type: Spontaneous
  Country: US (occurrence: US)
  Receive Date: 20180326
  Receipt Date: 20180405
  Transmission Date: 20180711
  Serious: Yes (Other)
  Sender: FDA-Public Use
  Company Number: US-BRISTOL-MYERS SQUIBB COMPANY-BMS-2018-024826

PATIENT
  Age: 50 Year
  Sex: Female
  Weight: 108.8 kg

DRUGS (1)
  1. KENALOG-40 [Suspect]
     Active Substance: TRIAMCINOLONE ACETONIDE
     Indication: CARTILAGE INJURY
     Dosage: 40 MG, UNK
     Route: 065
     Dates: start: 201801

REACTIONS (14)
  - Hyperhidrosis [Unknown]
  - Asthenia [Unknown]
  - Pain [Unknown]
  - Postmenopausal haemorrhage [Recovered/Resolved]
  - Menstruation irregular [Unknown]
  - Postural orthostatic tachycardia syndrome [Unknown]
  - Pollakiuria [Unknown]
  - Tachycardia [Unknown]
  - Syncope [Unknown]
  - Product use in unapproved indication [Unknown]
  - Reproductive tract disorder [Unknown]
  - Dizziness [Unknown]
  - Malaise [Unknown]
  - Inflammation [Unknown]
